FAERS Safety Report 6341751-1 (Version None)
Quarter: 2009Q3

REPORT INFORMATION
  Report Type: 
  Country: None (occurrence: None)
  Receive Date: 20090904
  Receipt Date: 20090902
  Transmission Date: 20100115
  Serious: Yes (Death, Other)
  Sender: FDA-Public Use
  Company Number: PHHY2009JP24885

PATIENT
  Sex: Male
  Weight: 45 kg

DRUGS (10)
  1. TEGRETOL [Suspect]
     Indication: EPILEPSY
     Dosage: 600 MG DAILY
     Route: 048
     Dates: start: 20090101, end: 20090702
  2. LORAZEPAM [Suspect]
     Indication: ANXIETY
     Dosage: 1.5 MG
     Route: 048
     Dates: start: 20090529, end: 20090702
  3. MYSTAN [Suspect]
     Indication: EPILEPSY
     Dosage: 30 MG
     Route: 048
     Dates: start: 20090119, end: 20090702
  4. ALEVIATIN [Suspect]
     Indication: EPILEPSY
     Dosage: 200 MG
     Route: 048
     Dates: start: 20090119
  5. EXCEGRAN [Suspect]
     Indication: EPILEPSY
     Dosage: 100 MG
     Route: 048
     Dates: start: 20090522, end: 20090702
  6. BENZALIN [Suspect]
     Indication: INSOMNIA
     Dosage: 2 MG
     Route: 048
     Dates: start: 20090119, end: 20090702
  7. DEPAKENE [Suspect]
     Indication: EPILEPSY
     Dosage: 16 ML
     Route: 048
     Dates: end: 20090702
  8. CLARITH [Suspect]
     Indication: DIFFUSE PANBRONCHIOLITIS
     Dosage: 400 MG
     Route: 048
     Dates: start: 20090424, end: 20090625
  9. SEPAMIT [Suspect]
     Indication: HYPERTENSION
     Dosage: 20 MG
     Route: 048
     Dates: start: 20090602, end: 20090702
  10. MUCODYNE [Suspect]
     Indication: PRODUCTIVE COUGH
     Dosage: 750 MG
     Route: 048
     Dates: start: 20090404, end: 20090702

REACTIONS (10)
  - BLOOD SODIUM DECREASED [None]
  - BLOOD UREA DECREASED [None]
  - HAEMATOCRIT DECREASED [None]
  - HAEMOGLOBIN DECREASED [None]
  - HYPOTHERMIA [None]
  - PLATELET COUNT DECREASED [None]
  - PNEUMONIA [None]
  - PYREXIA [None]
  - RED BLOOD CELL COUNT DECREASED [None]
  - WHITE BLOOD CELL COUNT INCREASED [None]
